FAERS Safety Report 14438689 (Version 1)
Quarter: 2018Q1

REPORT INFORMATION
  Report Type: Spontaneous
  Country: US (occurrence: US)
  Receive Date: 20180125
  Receipt Date: 20180125
  Transmission Date: 20180509
  Serious: No
  Sender: FDA-Public Use
  Company Number: US-UNITED THERAPEUTICS-UNT-2017-012652

PATIENT
  Age: 75 Year
  Sex: Female
  Weight: 54.42 kg

DRUGS (4)
  1. REMODULIN [Suspect]
     Active Substance: TREPROSTINIL
     Dosage: 0.0285 ?G/KG, CONTINUING
     Route: 058
  2. REMODULIN [Suspect]
     Active Substance: TREPROSTINIL
     Indication: PULMONARY HYPERTENSION
     Dosage: 0.0165 ?G/KG, CONTINUING
     Route: 058
     Dates: start: 20170614
  3. REMODULIN [Suspect]
     Active Substance: TREPROSTINIL
     Dosage: 0.0315 ?G/KG, CONTINUING
     Route: 058
  4. REMODULIN [Suspect]
     Active Substance: TREPROSTINIL
     Dosage: 0.015 ?G/KG, CONTINUING
     Route: 058

REACTIONS (10)
  - Fatigue [Recovered/Resolved]
  - Infusion site erythema [Unknown]
  - Oedema peripheral [Unknown]
  - Pruritus generalised [Unknown]
  - Infusion site warmth [Unknown]
  - Insomnia [Unknown]
  - Cough [Unknown]
  - Infusion site pain [Unknown]
  - Dyspnoea [Recovered/Resolved]
  - Asthenia [Unknown]

NARRATIVE: CASE EVENT DATE: 2017
